FAERS Safety Report 7414587-8 (Version None)
Quarter: 2011Q2

REPORT INFORMATION
  Report Type: 
  Country: None (occurrence: None)
  Receive Date: 20110414
  Receipt Date: 20110407
  Transmission Date: 20111010
  Serious: Yes (Other)
  Sender: FDA-Public Use
  Company Number: US-BRISTOL-MYERS SQUIBB COMPANY-15234289

PATIENT
  Age: 73 Year
  Sex: Male

DRUGS (6)
  1. CRESTOR [Concomitant]
  2. BENECOL [Concomitant]
  3. LOTREL [Concomitant]
  4. PROTONIX [Concomitant]
  5. ONGLYZA [Suspect]
     Dates: start: 20100604, end: 20100805
  6. ALLOPURINOL [Concomitant]

REACTIONS (1)
  - PANCREATITIS [None]
